FAERS Safety Report 4900878-9 (Version None)
Quarter: 2006Q1

REPORT INFORMATION
  Report Type: 
  Country: None (occurrence: None)
  Receive Date: 20060201
  Receipt Date: 20060119
  Transmission Date: 20060701
  Serious: Yes (Hospitalization)
  Sender: FDA-Public Use
  Company Number: 220211

PATIENT
  Sex: Female

DRUGS (1)
  1. METALYSE                      (TENECTEPLASE) [Suspect]
     Indication: DRUG USE FOR UNKNOWN INDICATION
     Dates: start: 20051104, end: 20051104

REACTIONS (1)
  - VENTRICULAR SEPTAL DEFECT ACQUIRED [None]
